FAERS Safety Report 13888732 (Version 1)
Quarter: 2017Q3

REPORT INFORMATION
  Report Type: Spontaneous
  Country: US (occurrence: US)
  Receive Date: 20170822
  Receipt Date: 20170822
  Transmission Date: 20171127
  Serious: No
  Sender: FDA-Public Use
  Company Number: US-ROCHE-1248511

PATIENT
  Sex: Female
  Weight: 90.8 kg

DRUGS (2)
  1. ACTEMRA [Suspect]
     Active Substance: TOCILIZUMAB
     Indication: RHEUMATOID ARTHRITIS
     Dosage: LAST INFUSION RECEIVED ON 24/JUN/2013
     Route: 042
  2. LOSARTAN. [Concomitant]
     Active Substance: LOSARTAN
     Route: 065

REACTIONS (3)
  - Hypotension [Unknown]
  - White blood cell count decreased [Unknown]
  - Neutrophil count decreased [Unknown]
